FAERS Safety Report 7110432-9 (Version None)
Quarter: 2010Q4

REPORT INFORMATION
  Report Type: 
  Country: None (occurrence: None)
  Receive Date: 20101112
  Receipt Date: 20101027
  Transmission Date: 20110411
  Serious: Yes (Hospitalization)
  Sender: FDA-Public Use
  Company Number: 1-17244257

PATIENT
  Age: 52 Year
  Sex: Female
  Weight: 45.3597 kg

DRUGS (18)
  1. QUININE SULFATE [Suspect]
     Indication: MUSCLE SPASMS
     Dosage: 520 MG, AT BEDTIME, ORAL
     Route: 048
     Dates: start: 20050128
  2. QUALAQUIN [Suspect]
     Indication: MUSCLE SPASMS
     Dosage: 520 MG, AT BEDTIME, ORAL
     Route: 048
     Dates: start: 20070520, end: 20070831
  3. QUININE SULFATE [Suspect]
     Indication: MUSCLE SPASMS
     Dosage: 520 MG, AT BEDTIME, ORAL
     Route: 048
     Dates: start: 20050414, end: 20070227
  4. PRILOSEC [Concomitant]
  5. MOBIC [Concomitant]
  6. SINGULAIR [Suspect]
  7. ADVAIR [Concomitant]
  8. ALLEGRA [Suspect]
  9. PERCOCET [Concomitant]
  10. ALBUTEROL [Concomitant]
  11. KEFLEX [Concomitant]
  12. COLACE [Concomitant]
  13. TAMBOCOR [Concomitant]
  14. PROTONIX [Concomitant]
  15. UNSPECIFIED MULTIVITAMINS [Concomitant]
  16. VITAMIN B-12 [Concomitant]
  17. FOLIC ACID [Concomitant]
  18. BENEFIBER [Concomitant]

REACTIONS (13)
  - ABDOMINAL TENDERNESS [None]
  - ASTHMA [None]
  - BACK PAIN [None]
  - DECREASED APPETITE [None]
  - DIVERTICULUM INTESTINAL [None]
  - GASTRITIS [None]
  - HAEMORRHOIDAL HAEMORRHAGE [None]
  - HIATUS HERNIA [None]
  - INFECTION [None]
  - IRON DEFICIENCY ANAEMIA [None]
  - MICROCYTIC ANAEMIA [None]
  - PAIN IN EXTREMITY [None]
  - THROMBOCYTOPENIA [None]
